FAERS Safety Report 19378203 (Version 1)
Quarter: 2021Q2

REPORT INFORMATION
  Report Type: Report from Study
  Country: None (occurrence: PR)
  Receive Date: 20210605
  Receipt Date: 20210605
  Transmission Date: 20210717
  Serious: Yes (Hospitalization)
  Sender: FDA-Public Use
  Company Number: PR-ABBVIE-21K-131-3934910-00

PATIENT
  Age: 71 Year
  Sex: Female
  Weight: 88.08 kg

DRUGS (1)
  1. VENCLEXTA [Suspect]
     Active Substance: VENETOCLAX
     Indication: ACUTE MYELOID LEUKAEMIA
     Route: 048

REACTIONS (6)
  - Dyspepsia [Unknown]
  - Headache [Unknown]
  - Oral pain [Recovered/Resolved]
  - Abdominal pain upper [Recovering/Resolving]
  - Haemoglobin decreased [Recovering/Resolving]
  - Blood pressure increased [Unknown]
